FAERS Safety Report 10550871 (Version 3)
Quarter: 2015Q1

REPORT INFORMATION
  Report Type: Report from Study
  Country: ES (occurrence: ES)
  Receive Date: 20141029
  Receipt Date: 20150305
  Transmission Date: 20150720
  Serious: Yes (Death)
  Sender: FDA-Public Use
  Company Number: ES-ROCHE-1480324

PATIENT
  Age: 86 Year
  Sex: Male

DRUGS (4)
  1. PREDNISOLONE. [Concomitant]
     Active Substance: PREDNISOLONE
     Route: 065
  2. PREDNISOLONE. [Concomitant]
     Active Substance: PREDNISOLONE
     Route: 065
  3. TOCILIZUMAB [Suspect]
     Active Substance: TOCILIZUMAB
     Indication: TEMPORAL ARTERITIS
     Route: 042
  4. TOCILIZUMAB [Suspect]
     Active Substance: TOCILIZUMAB
     Dosage: MAINTENANCE DOSE OF 4 TO 8MG/KG EVERY 4 OR 8 WEEKS
     Route: 042

REACTIONS (2)
  - Cerebrovascular accident [Fatal]
  - Endocarditis [Fatal]
